FAERS Safety Report 11776681 (Version 1)
Quarter: 2015Q4

REPORT INFORMATION
  Report Type: Spontaneous
  Country: US (occurrence: None)
  Receive Date: 20151124
  Receipt Date: 20151124
  Transmission Date: 20160304
  Serious: No
  Sender: FDA-Public Use
  Company Number: None

PATIENT
  Age: 52 Year
  Sex: Male
  Weight: 119.3 kg

DRUGS (3)
  1. LIPITOR [Concomitant]
     Active Substance: ATORVASTATIN CALCIUM
  2. TANZEUM [Suspect]
     Active Substance: ALBIGLUTIDE
     Indication: TYPE 2 DIABETES MELLITUS
     Dosage: 1 SHOT, GIVEN INTO/UNDER THE SKIN
     Dates: start: 20150821, end: 20151106
  3. INVOKANA [Concomitant]
     Active Substance: CANAGLIFLOZIN

REACTIONS (4)
  - Eye pruritus [None]
  - Pruritus [None]
  - Eye inflammation [None]
  - Ocular hyperaemia [None]

NARRATIVE: CASE EVENT DATE: 20151102
